FAERS Safety Report 22710013 (Version 2)
Quarter: 2024Q1

REPORT INFORMATION
  Report Type: Spontaneous
  Country: US (occurrence: US)
  Receive Date: 20230717
  Receipt Date: 20240305
  Transmission Date: 20240410
  Serious: No
  Sender: FDA-Public Use
  Company Number: US-BRISTOL-MYERS SQUIBB COMPANY-2023-099979

PATIENT
  Age: 66 Year
  Sex: Female
  Weight: 92.53 kg

DRUGS (2)
  1. REVLIMID [Suspect]
     Active Substance: LENALIDOMIDE
     Indication: Plasma cell myeloma
     Dosage: 14D ON 7D OFF
     Route: 048
     Dates: start: 20230601
  2. REVLIMID [Suspect]
     Active Substance: LENALIDOMIDE
     Dosage: 3 WEEKS ON, 1WEEK OFF
     Route: 048

REACTIONS (4)
  - Constipation [Unknown]
  - Off label use [Unknown]
  - Fatigue [Unknown]
  - Dry skin [Unknown]
